FAERS Safety Report 13832275 (Version 1)
Quarter: 2017Q3

REPORT INFORMATION
  Report Type: Spontaneous
  Country: US (occurrence: US)
  Receive Date: 20170803
  Receipt Date: 20170803
  Transmission Date: 20171127
  Serious: No
  Sender: FDA-Public Use
  Company Number: US-ROCHE-702353

PATIENT
  Age: 82 Year
  Sex: Female
  Weight: 60.3 kg

DRUGS (3)
  1. BONIVA [Suspect]
     Active Substance: IBANDRONATE SODIUM
     Indication: OSTEOPOROSIS
     Route: 048
  2. ADALAT [Concomitant]
     Active Substance: NIFEDIPINE
     Route: 065
  3. BABY ASA [Concomitant]
     Active Substance: ASPIRIN
     Dosage: DRUG REPORTED: BABY ASPIRIN
     Route: 065

REACTIONS (1)
  - Skin infection [Unknown]
